FAERS Safety Report 7865955-1 (Version None)
Quarter: 2011Q4

REPORT INFORMATION
  Report Type: 
  Country: None (occurrence: None)
  Receive Date: 20111028
  Receipt Date: 20110325
  Transmission Date: 20120403
  Serious: No
  Sender: FDA-Public Use
  Company Number: US-GLAXOSMITHKLINE-A0920080A

PATIENT
  Age: 81 Year
  Sex: Male
  Weight: 51.8 kg

DRUGS (14)
  1. POTASSIUM CHLORIDE [Concomitant]
  2. DEXLANSOPRAZOLE [Concomitant]
  3. ASACOL [Concomitant]
  4. PROBIOTIC [Concomitant]
     Route: 048
  5. TOPIRAMATE [Concomitant]
  6. ADVAIR DISKUS 100/50 [Suspect]
     Indication: ASTHMA
     Dosage: 1PUFF TWICE PER DAY
     Route: 055
     Dates: start: 20101001
  7. ALBUTEROL [Concomitant]
  8. FOSAMAX [Concomitant]
  9. FLUDROCORTISONE ACETATE [Concomitant]
  10. AVODART [Concomitant]
  11. MIDODRINE HYDROCHLORIDE [Concomitant]
  12. TRAZODONE HYDROCHLORIDE [Concomitant]
  13. METOPROLOL TARTRATE [Concomitant]
  14. SINGULAIR [Concomitant]

REACTIONS (2)
  - ORAL CANDIDIASIS [None]
  - RASH [None]
